FAERS Safety Report 23060327 (Version 3)
Quarter: 2024Q1

REPORT INFORMATION
  Report Type: Spontaneous
  Country: AU (occurrence: AU)
  Receive Date: 20231012
  Receipt Date: 20240205
  Transmission Date: 20240409
  Serious: Yes (Hospitalization, Other)
  Sender: FDA-Public Use
  Company Number: AU-MYLANLABS-2023M1106602

PATIENT
  Age: 47 Year
  Sex: Female

DRUGS (8)
  1. CLOZARIL [Suspect]
     Active Substance: CLOZAPINE
     Indication: Schizophrenia
     Dosage: UNK
     Route: 065
     Dates: start: 1999
  2. CLOZARIL [Suspect]
     Active Substance: CLOZAPINE
     Dosage: UNK
     Route: 048
     Dates: start: 20091027, end: 20210902
  3. CLOZARIL [Suspect]
     Active Substance: CLOZAPINE
     Dosage: 400 MILLIGRAM, QD
     Route: 065
     Dates: start: 201001
  4. VALPROATE [Concomitant]
     Active Substance: VALPROIC ACID
     Dosage: 1 GRAM, BID
     Route: 065
     Dates: start: 201001, end: 201003
  5. VALPROATE [Concomitant]
     Active Substance: VALPROIC ACID
     Dosage: 1.7 GRAM
     Route: 065
     Dates: start: 20210817
  6. QUETIAPINE [Concomitant]
     Active Substance: QUETIAPINE
     Dosage: 300 MILLIGRAM NOCTE
     Route: 065
     Dates: start: 201901, end: 202006
  7. QUETIAPINE [Concomitant]
     Active Substance: QUETIAPINE
     Dosage: 600 MILLIGRAM, QD
     Route: 065
     Dates: start: 20210525, end: 20210831
  8. LITHIUM [Concomitant]
     Active Substance: LITHIUM
     Dosage: UNK
     Route: 065
     Dates: start: 20210902

REACTIONS (3)
  - Malaise [Unknown]
  - Neutropenia [Unknown]
  - Illness [Unknown]

NARRATIVE: CASE EVENT DATE: 20210801
